FAERS Safety Report 9386106 (Version 1)
Quarter: 2013Q3

REPORT INFORMATION
  Report Type: Spontaneous
  Country: US (occurrence: US)
  Receive Date: 20130707
  Receipt Date: 20130707
  Transmission Date: 20140515
  Serious: No
  Sender: FDA-Public Use
  Company Number: US-009507513-1306USA011826

PATIENT
  Sex: Female

DRUGS (2)
  1. EMEND [Suspect]
     Indication: NAUSEA
     Dosage: 150MG/ 30 MINUTES IV INFUSION
     Route: 042
     Dates: start: 20130621, end: 20130621
  2. EMEND [Suspect]
     Indication: VOMITING

REACTIONS (1)
  - Fibrosis [Recovered/Resolved]
